FAERS Safety Report 10072941 (Version 1)
Quarter: 2014Q2

REPORT INFORMATION
  Report Type: Spontaneous
  Country: MX (occurrence: MX)
  Receive Date: 20140411
  Receipt Date: 20140411
  Transmission Date: 20141212
  Serious: Yes (Other)
  Sender: FDA-Public Use
  Company Number: MX-UCBSA-117974

PATIENT
  Age: 13 Year
  Sex: Male
  Weight: 26 kg

DRUGS (3)
  1. VIMPAT [Suspect]
     Indication: EPILEPSY
     Dosage: 50MG 1/2TABLET EVERY 12 HOUR PLUS 100MG 1/4 TABLET EVERY 12 HOUR
     Route: 048
     Dates: start: 20140207, end: 201403
  2. KEPPRA [Concomitant]
     Indication: EPILEPSY
     Dosage: SOLUTION
     Dates: start: 2014
  3. TOPIRAMATE [Concomitant]
     Indication: EPILEPSY
     Dosage: 7 TABLETS EVERY 24 HOURS
     Dates: start: 2007

REACTIONS (1)
  - Convulsion [Not Recovered/Not Resolved]
